FAERS Safety Report 22646783 (Version 20)
Quarter: 2025Q1

REPORT INFORMATION
  Report Type: Spontaneous
  Country: CA (occurrence: CA)
  Receive Date: 20230627
  Receipt Date: 20250303
  Transmission Date: 20250409
  Serious: Yes (Death, Life-Threatening, Hospitalization, Disabling, Other)
  Sender: SANOFI AVENTIS
  Company Number: CA-SAKK-2023SA177830AA

PATIENT
  Age: 80 Year
  Sex: Male
  Weight: 69 kg

DRUGS (194)
  1. INSULIN ASPART [Suspect]
     Active Substance: INSULIN ASPART
     Indication: Diabetes mellitus
     Route: 058
  2. INSULIN ASPART [Suspect]
     Active Substance: INSULIN ASPART
  3. INSULIN ASPART [Suspect]
     Active Substance: INSULIN ASPART
     Route: 058
  4. INSULIN ASPART [Suspect]
     Active Substance: INSULIN ASPART
     Route: 065
  5. METRONIDAZOLE [Suspect]
     Active Substance: METRONIDAZOLE
     Indication: Off label use
     Dosage: 500 MG, TID
     Route: 048
  6. METRONIDAZOLE [Suspect]
     Active Substance: METRONIDAZOLE
     Indication: Intentional product misuse
     Dosage: 500 MG, TID
     Route: 048
  7. METRONIDAZOLE [Suspect]
     Active Substance: METRONIDAZOLE
     Indication: Bacterial infection
  8. METRONIDAZOLE [Suspect]
     Active Substance: METRONIDAZOLE
     Indication: Intentional product misuse
     Dosage: UNK, QD
     Route: 048
  9. METRONIDAZOLE [Suspect]
     Active Substance: METRONIDAZOLE
     Dosage: DOSE DESCRIPTION : 1500 MG
     Route: 048
  10. METRONIDAZOLE [Suspect]
     Active Substance: METRONIDAZOLE
     Dosage: 1500 MG, QD
     Route: 048
  11. METRONIDAZOLE [Suspect]
     Active Substance: METRONIDAZOLE
     Dosage: 1500 MG, TID
     Route: 048
  12. METRONIDAZOLE [Suspect]
     Active Substance: METRONIDAZOLE
     Route: 048
  13. METRONIDAZOLE [Suspect]
     Active Substance: METRONIDAZOLE
     Dosage: 1 DF, QD
     Route: 048
  14. METRONIDAZOLE [Suspect]
     Active Substance: METRONIDAZOLE
     Dosage: 500 UG, TID
     Route: 048
  15. METRONIDAZOLE [Suspect]
     Active Substance: METRONIDAZOLE
     Dosage: DOSE DESCRIPTION : 1500 UG, QD
     Route: 048
  16. METRONIDAZOLE [Suspect]
     Active Substance: METRONIDAZOLE
     Dosage: DOSE DESCRIPTION : 4500 MG, QD
     Route: 048
  17. METRONIDAZOLE [Suspect]
     Active Substance: METRONIDAZOLE
     Dosage: DOSE DESCRIPTION : UNK, Q3H
     Route: 048
  18. METRONIDAZOLE [Suspect]
     Active Substance: METRONIDAZOLE
     Route: 048
  19. METRONIDAZOLE [Suspect]
     Active Substance: METRONIDAZOLE
     Dosage: 500 MICROGRAM, Q8HR
     Route: 048
  20. METRONIDAZOLE [Suspect]
     Active Substance: METRONIDAZOLE
     Dosage: 500 MILLIGRAM, Q8HR
     Route: 048
  21. METRONIDAZOLE [Suspect]
     Active Substance: METRONIDAZOLE
     Dosage: 1500 MG, QD
     Route: 048
  22. METRONIDAZOLE [Suspect]
     Active Substance: METRONIDAZOLE
     Dosage: 500 MG, QD
     Route: 048
  23. METRONIDAZOLE [Suspect]
     Active Substance: METRONIDAZOLE
     Dosage: 500 MG, TID
     Route: 048
  24. METRONIDAZOLE [Suspect]
     Active Substance: METRONIDAZOLE
     Dosage: 1500 MG, TID
     Route: 048
  25. METRONIDAZOLE [Suspect]
     Active Substance: METRONIDAZOLE
     Dosage: 500 UG, QD
     Route: 048
  26. METRONIDAZOLE [Suspect]
     Active Substance: METRONIDAZOLE
     Route: 048
  27. METRONIDAZOLE [Suspect]
     Active Substance: METRONIDAZOLE
     Dosage: TID
  28. METRONIDAZOLE [Suspect]
     Active Substance: METRONIDAZOLE
     Dosage: Q3H
     Route: 048
  29. LANSOPRAZOLE [Suspect]
     Active Substance: LANSOPRAZOLE
     Indication: Antacid therapy
     Dosage: 30 MG, QD
  30. LANSOPRAZOLE [Suspect]
     Active Substance: LANSOPRAZOLE
     Indication: Intentional product misuse
     Dosage: UNK
     Route: 048
  31. LANSOPRAZOLE [Suspect]
     Active Substance: LANSOPRAZOLE
     Indication: Off label use
     Dosage: 1 DF, QID
     Route: 048
  32. LANSOPRAZOLE [Suspect]
     Active Substance: LANSOPRAZOLE
     Indication: Intentional product misuse
     Route: 054
  33. LANSOPRAZOLE [Suspect]
     Active Substance: LANSOPRAZOLE
     Dosage: 30 MG, QD
     Route: 048
  34. LANSOPRAZOLE [Suspect]
     Active Substance: LANSOPRAZOLE
     Dosage: CAPSULE
     Route: 065
  35. LANSOPRAZOLE [Suspect]
     Active Substance: LANSOPRAZOLE
     Route: 065
  36. ACETAMINOPHEN [Suspect]
     Active Substance: ACETAMINOPHEN
     Indication: Off label use
  37. ACETAMINOPHEN [Suspect]
     Active Substance: ACETAMINOPHEN
     Indication: Analgesic therapy
     Dosage: DOSE DESCRIPTION : 650 MG, QD
     Route: 048
  38. ACETAMINOPHEN [Suspect]
     Active Substance: ACETAMINOPHEN
     Indication: Intentional product misuse
     Dosage: DOSE DESCRIPTION : 5 MG, QD
     Route: 042
  39. ACETAMINOPHEN [Suspect]
     Active Substance: ACETAMINOPHEN
     Indication: Product used for unknown indication
     Dosage: QD
     Route: 065
  40. ACETAMINOPHEN [Suspect]
     Active Substance: ACETAMINOPHEN
     Route: 048
  41. ALLOPURINOL [Suspect]
     Active Substance: ALLOPURINOL
     Indication: Blood uric acid increased
     Route: 048
  42. ALLOPURINOL [Suspect]
     Active Substance: ALLOPURINOL
     Indication: Off label use
     Dosage: DOSE DESCRIPTION : 100 MG, QD
  43. ALLOPURINOL [Suspect]
     Active Substance: ALLOPURINOL
     Indication: Intentional product misuse
     Dosage: DOSE DESCRIPTION : 1 DF, QD
     Route: 048
  44. ALLOPURINOL [Suspect]
     Active Substance: ALLOPURINOL
  45. AMIODARONE HYDROCHLORIDE [Suspect]
     Active Substance: AMIODARONE HYDROCHLORIDE
     Indication: Ventricular fibrillation
     Dosage: 150 MG, QD
     Route: 042
  46. AMIODARONE HYDROCHLORIDE [Suspect]
     Active Substance: AMIODARONE HYDROCHLORIDE
     Indication: Drug therapy
     Dosage: UNK, QD
     Route: 042
  47. AMIODARONE HYDROCHLORIDE [Suspect]
     Active Substance: AMIODARONE HYDROCHLORIDE
     Indication: Intentional product misuse
     Dosage: 150 MG
     Route: 042
  48. AMIODARONE HYDROCHLORIDE [Suspect]
     Active Substance: AMIODARONE HYDROCHLORIDE
     Route: 042
  49. AMIODARONE HYDROCHLORIDE [Suspect]
     Active Substance: AMIODARONE HYDROCHLORIDE
     Dosage: 1 DF, QD
     Route: 042
  50. AMIODARONE HYDROCHLORIDE [Suspect]
     Active Substance: AMIODARONE HYDROCHLORIDE
     Dosage: 150 MG
     Route: 042
  51. AMIODARONE HYDROCHLORIDE [Suspect]
     Active Substance: AMIODARONE HYDROCHLORIDE
     Route: 042
  52. BETAMETHASONE [Suspect]
     Active Substance: BETAMETHASONE
     Indication: Swelling
     Route: 061
  53. BETAMETHASONE [Suspect]
     Active Substance: BETAMETHASONE
  54. BETAMETHASONE [Suspect]
     Active Substance: BETAMETHASONE
  55. CEFTRIAXONE SODIUM [Suspect]
     Active Substance: CEFTRIAXONE SODIUM
     Indication: Bacterial infection
     Dosage: 2 G, QD
     Route: 042
  56. CEFTRIAXONE SODIUM [Suspect]
     Active Substance: CEFTRIAXONE SODIUM
  57. GABAPENTIN [Suspect]
     Active Substance: GABAPENTIN
     Indication: Neuralgia
     Dosage: DOSE DESCRIPTION : 100 MG, QD
     Route: 048
  58. GABAPENTIN [Suspect]
     Active Substance: GABAPENTIN
     Route: 048
  59. ONDANSETRON [Suspect]
     Active Substance: ONDANSETRON
     Indication: Vomiting
     Route: 042
  60. ONDANSETRON [Suspect]
     Active Substance: ONDANSETRON
     Indication: Nausea
     Route: 042
  61. ONDANSETRON [Suspect]
     Active Substance: ONDANSETRON
     Indication: Off label use
     Route: 065
  62. ONDANSETRON [Suspect]
     Active Substance: ONDANSETRON
  63. ONDANSETRON [Suspect]
     Active Substance: ONDANSETRON
  64. ONDANSETRON [Suspect]
     Active Substance: ONDANSETRON
  65. ONDANSETRON [Suspect]
     Active Substance: ONDANSETRON
  66. ONDANSETRON [Suspect]
     Active Substance: ONDANSETRON
     Dosage: DOSE DESCRIPTION : 4 MG, QD
     Route: 042
  67. ONDANSETRON [Suspect]
     Active Substance: ONDANSETRON
     Route: 042
  68. ONDANSETRON [Suspect]
     Active Substance: ONDANSETRON
  69. ONDANSETRON [Suspect]
     Active Substance: ONDANSETRON
  70. ONDANSETRON [Suspect]
     Active Substance: ONDANSETRON
  71. ONDANSETRON [Suspect]
     Active Substance: ONDANSETRON
  72. ONDANSETRON [Suspect]
     Active Substance: ONDANSETRON
  73. ONDANSETRON [Suspect]
     Active Substance: ONDANSETRON
  74. ONDANSETRON [Suspect]
     Active Substance: ONDANSETRON
  75. ONDANSETRON [Suspect]
     Active Substance: ONDANSETRON
  76. ONDANSETRON [Suspect]
     Active Substance: ONDANSETRON
  77. ONDANSETRON [Suspect]
     Active Substance: ONDANSETRON
  78. ONDANSETRON [Suspect]
     Active Substance: ONDANSETRON
  79. ONDANSETRON [Suspect]
     Active Substance: ONDANSETRON
  80. ONDANSETRON [Suspect]
     Active Substance: ONDANSETRON
  81. ONDANSETRON [Suspect]
     Active Substance: ONDANSETRON
     Route: 042
  82. ONDANSETRON [Suspect]
     Active Substance: ONDANSETRON
  83. ONDANSETRON [Suspect]
     Active Substance: ONDANSETRON
  84. ONDANSETRON [Suspect]
     Active Substance: ONDANSETRON
     Dosage: DOSE DESCRIPTION : 36 MG, Q8H
     Route: 042
  85. ONDANSETRON [Suspect]
     Active Substance: ONDANSETRON
     Route: 042
  86. ONDANSETRON [Suspect]
     Active Substance: ONDANSETRON
     Route: 042
  87. ONDANSETRON [Suspect]
     Active Substance: ONDANSETRON
     Dosage: DOSE DESCRIPTION : 8 MG, Q8H
     Route: 042
  88. ONDANSETRON [Suspect]
     Active Substance: ONDANSETRON
     Dosage: DOSE DESCRIPTION : 41.14 MG, Q8H
     Route: 042
  89. ONDANSETRON [Suspect]
     Active Substance: ONDANSETRON
     Dosage: DOSE DESCRIPTION : 24 MG, Q8H
     Route: 042
  90. ONDANSETRON [Suspect]
     Active Substance: ONDANSETRON
     Route: 042
  91. ONDANSETRON [Suspect]
     Active Substance: ONDANSETRON
     Dosage: DOSE DESCRIPTION : 12 MG, QD
     Route: 042
  92. ONDANSETRON [Suspect]
     Active Substance: ONDANSETRON
     Route: 042
  93. ONDANSETRON [Suspect]
     Active Substance: ONDANSETRON
     Route: 042
  94. ONDANSETRON [Suspect]
     Active Substance: ONDANSETRON
     Route: 042
  95. ONDANSETRON [Suspect]
     Active Substance: ONDANSETRON
     Dosage: DOSE DESCRIPTION : 1 DF, Q8H
     Route: 042
  96. ONDANSETRON [Suspect]
     Active Substance: ONDANSETRON
     Dosage: DOSE DESCRIPTION : 4 MG, Q8H
     Route: 042
  97. ONDANSETRON [Suspect]
     Active Substance: ONDANSETRON
     Dosage: DOSE DESCRIPTION : 1 DF, QD
     Route: 042
  98. ONDANSETRON [Suspect]
     Active Substance: ONDANSETRON
     Route: 042
  99. ONDANSETRON [Suspect]
     Active Substance: ONDANSETRON
     Dosage: DOSE DESCRIPTION : 1 DF, Q6H
     Route: 042
  100. ONDANSETRON [Suspect]
     Active Substance: ONDANSETRON
     Dosage: DOSE DESCRIPTION : 12 MG, QD
     Route: 042
  101. ONDANSETRON [Suspect]
     Active Substance: ONDANSETRON
     Route: 042
  102. ONDANSETRON [Suspect]
     Active Substance: ONDANSETRON
     Dosage: DOSE DESCRIPTION : 40 MG, QD
     Route: 042
  103. ONDANSETRON [Suspect]
     Active Substance: ONDANSETRON
     Dosage: DOSE DESCRIPTION : 36 MG, QD
     Route: 042
  104. ONDANSETRON [Suspect]
     Active Substance: ONDANSETRON
     Dosage: DOSE DESCRIPTION : 36 MG, Q8H
     Route: 042
  105. PYRIDOXINE HYDROCHLORIDE [Suspect]
     Active Substance: PYRIDOXINE HYDROCHLORIDE
     Indication: Vitamin supplementation
     Route: 048
  106. PYRIDOXINE HYDROCHLORIDE [Suspect]
     Active Substance: PYRIDOXINE HYDROCHLORIDE
     Route: 048
  107. PYRIDOXINE HYDROCHLORIDE [Suspect]
     Active Substance: PYRIDOXINE HYDROCHLORIDE
     Route: 048
  108. ALBUTEROL SULFATE [Suspect]
     Active Substance: ALBUTEROL SULFATE
     Indication: Chronic obstructive pulmonary disease
     Dosage: UNK UNK, QID
     Route: 055
  109. ALBUTEROL SULFATE [Suspect]
     Active Substance: ALBUTEROL SULFATE
     Indication: Off label use
     Dosage: UNK UNK, QD
     Route: 055
  110. ALBUTEROL SULFATE [Suspect]
     Active Substance: ALBUTEROL SULFATE
     Indication: Intentional product misuse
  111. SIMVASTATIN [Suspect]
     Active Substance: SIMVASTATIN
     Indication: Blood cholesterol increased
     Dosage: 40 MG, QD
     Route: 048
  112. SIMVASTATIN [Suspect]
     Active Substance: SIMVASTATIN
     Indication: Vitamin supplementation
     Route: 048
  113. ATROVENT [Suspect]
     Active Substance: IPRATROPIUM BROMIDE
     Indication: Sleep disorder therapy
     Dosage: UNK UNK, QID
     Route: 048
  114. ATROVENT [Suspect]
     Active Substance: IPRATROPIUM BROMIDE
     Indication: Dyspnoea
     Route: 048
  115. SODIUM FERRIC GLUCONATE COMPLEX [Suspect]
     Active Substance: SODIUM FERRIC GLUCONATE COMPLEX
     Indication: Iron deficiency
     Dosage: 17.85 MG, QW
     Route: 040
  116. SODIUM FERRIC GLUCONATE COMPLEX [Suspect]
     Active Substance: SODIUM FERRIC GLUCONATE COMPLEX
     Dosage: 125 MG, QM
     Route: 042
  117. SODIUM FERRIC GLUCONATE COMPLEX [Suspect]
     Active Substance: SODIUM FERRIC GLUCONATE COMPLEX
     Route: 042
  118. WARFARIN SODIUM [Suspect]
     Active Substance: WARFARIN SODIUM
     Indication: Thrombosis
     Dosage: DOSE DESCRIPTION : 2 MG, QD
     Route: 048
  119. WARFARIN SODIUM [Suspect]
     Active Substance: WARFARIN SODIUM
  120. SODIUM PICOSULFATE [Suspect]
     Active Substance: SODIUM PICOSULFATE
     Indication: Constipation
     Route: 054
  121. SODIUM PICOSULFATE [Suspect]
     Active Substance: SODIUM PICOSULFATE
  122. FLUTICASONE FUROATE [Suspect]
     Active Substance: FLUTICASONE FUROATE
     Indication: Product used for unknown indication
     Route: 048
  123. FLUTICASONE FUROATE [Suspect]
     Active Substance: FLUTICASONE FUROATE
     Dosage: 2.5 ML, QD
     Route: 048
  124. ASCORBIC ACID [Suspect]
     Active Substance: ASCORBIC ACID
     Indication: Vitamin supplementation
  125. ASCORBIC ACID [Suspect]
     Active Substance: ASCORBIC ACID
     Indication: Constipation
     Dosage: 17 G, QD
     Route: 048
  126. RIBOFLAVIN [Suspect]
     Active Substance: RIBOFLAVIN
  127. AMLODIPINE [Suspect]
     Active Substance: AMLODIPINE BESYLATE
  128. ALUMINUM HYDROXIDE\MAGNESIUM HYDROXIDE [Suspect]
     Active Substance: ALUMINUM HYDROXIDE\MAGNESIUM HYDROXIDE
     Indication: Constipation
     Route: 054
  129. ALUMINUM HYDROXIDE\MAGNESIUM HYDROXIDE [Suspect]
     Active Substance: ALUMINUM HYDROXIDE\MAGNESIUM HYDROXIDE
     Route: 054
  130. ALUMINUM HYDROXIDE\MAGNESIUM HYDROXIDE [Suspect]
     Active Substance: ALUMINUM HYDROXIDE\MAGNESIUM HYDROXIDE
  131. ALUMINUM HYDROXIDE\MAGNESIUM HYDROXIDE [Suspect]
     Active Substance: ALUMINUM HYDROXIDE\MAGNESIUM HYDROXIDE
     Route: 054
  132. DULCOLAX (BISACODYL) [Suspect]
     Active Substance: BISACODYL
     Indication: Constipation
     Dosage: DOSE DESCRIPTION : 10.0 MG, QD
     Route: 054
  133. DULCOLAX (BISACODYL) [Suspect]
     Active Substance: BISACODYL
     Dosage: DOSE DESCRIPTION : 10.0 MG, QD
     Route: 054
  134. DULCOLAX (BISACODYL) [Suspect]
     Active Substance: BISACODYL
     Dosage: DOSE DESCRIPTION : 10.0 MG, QD
     Route: 054
  135. DULCOLAX (BISACODYL) [Suspect]
     Active Substance: BISACODYL
     Dosage: DOSE DESCRIPTION : 10.0 MG, QD
     Route: 054
  136. DULCOLAX (BISACODYL) [Suspect]
     Active Substance: BISACODYL
     Dosage: DOSE DESCRIPTION : 10.0 MG, QD
     Route: 054
  137. DULCOLAX (BISACODYL) [Suspect]
     Active Substance: BISACODYL
     Dosage: DOSE DESCRIPTION : 10.0 MG, QD
     Route: 054
  138. DULCOLAX (BISACODYL) [Suspect]
     Active Substance: BISACODYL
     Dosage: DOSE DESCRIPTION : 10.0 MG, QD
     Route: 054
  139. DULCOLAX (BISACODYL) [Suspect]
     Active Substance: BISACODYL
     Dosage: DOSE DESCRIPTION : 10.0 MG, QD
     Route: 065
  140. VITAMIN A PALMITATE [Suspect]
     Active Substance: VITAMIN A PALMITATE
     Indication: Constipation
     Dosage: 17 G, QD
  141. THEOPHYLLINE [Suspect]
     Active Substance: THEOPHYLLINE
     Indication: Off label use
  142. THEOPHYLLINE [Suspect]
     Active Substance: THEOPHYLLINE
     Indication: Intentional product misuse
     Dosage: 4 DF, QD
  143. THEOPHYLLINE [Suspect]
     Active Substance: THEOPHYLLINE
     Indication: Chronic obstructive pulmonary disease
  144. THEOPHYLLINE [Suspect]
     Active Substance: THEOPHYLLINE
     Dosage: 1 DF, QID
  145. CALCIUM CARBONATE [Suspect]
     Active Substance: CALCIUM CARBONATE
     Indication: Vitamin supplementation
  146. MAALOX ANTACID [Suspect]
     Active Substance: ALUMINUM HYDROXIDE\DIMETHICONE\MAGNESIUM HYDROXIDE
     Indication: Constipation
     Route: 054
  147. MAALOX ANTACID [Suspect]
     Active Substance: ALUMINUM HYDROXIDE\DIMETHICONE\MAGNESIUM HYDROXIDE
  148. MAALOX ANTACID [Suspect]
     Active Substance: ALUMINUM HYDROXIDE\DIMETHICONE\MAGNESIUM HYDROXIDE
     Route: 054
  149. LEUCOVORIN CALCIUM [Suspect]
     Active Substance: LEUCOVORIN CALCIUM
  150. LANTHANUM CARBONATE [Suspect]
     Active Substance: LANTHANUM CARBONATE
     Indication: Blood phosphorus increased
     Dosage: 550 MG, QD
     Route: 048
  151. LANTHANUM CARBONATE [Suspect]
     Active Substance: LANTHANUM CARBONATE
     Indication: Hyperphosphataemia
     Route: 048
  152. LANTHANUM CARBONATE [Suspect]
     Active Substance: LANTHANUM CARBONATE
     Dosage: 500 MG, QD
     Route: 048
  153. LANTHANUM CARBONATE [Suspect]
     Active Substance: LANTHANUM CARBONATE
     Dosage: 500 UG, Q8H
     Route: 048
  154. LANTHANUM CARBONATE [Suspect]
     Active Substance: LANTHANUM CARBONATE
  155. POLYETHYLENE GLYCOL 4000\POTASSIUM CHLORIDE\SODIUM BICARBONATE\SODIUM [Suspect]
     Active Substance: POLYETHYLENE GLYCOL 4000\POTASSIUM CHLORIDE\SODIUM BICARBONATE\SODIUM CHLORIDE\SODIUM SULFATE
     Indication: Nutritional supplementation
     Dosage: 17 G, QD
     Route: 048
  156. POLYETHYLENE GLYCOL 4000\POTASSIUM CHLORIDE\SODIUM BICARBONATE\SODIUM [Suspect]
     Active Substance: POLYETHYLENE GLYCOL 4000\POTASSIUM CHLORIDE\SODIUM BICARBONATE\SODIUM CHLORIDE\SODIUM SULFATE
     Indication: Iron deficiency
     Dosage: 17 MG, QD
     Route: 048
  157. POLYETHYLENE GLYCOL 4000\POTASSIUM CHLORIDE\SODIUM BICARBONATE\SODIUM [Suspect]
     Active Substance: POLYETHYLENE GLYCOL 4000\POTASSIUM CHLORIDE\SODIUM BICARBONATE\SODIUM CHLORIDE\SODIUM SULFATE
     Indication: Constipation
     Dosage: 3 MG, QW
     Route: 048
  158. POLYETHYLENE GLYCOL 4000\POTASSIUM CHLORIDE\SODIUM BICARBONATE\SODIUM [Suspect]
     Active Substance: POLYETHYLENE GLYCOL 4000\POTASSIUM CHLORIDE\SODIUM BICARBONATE\SODIUM CHLORIDE\SODIUM SULFATE
     Dosage: 17 MG, QW
     Route: 048
  159. POLYETHYLENE GLYCOL 4000\POTASSIUM CHLORIDE\SODIUM BICARBONATE\SODIUM [Suspect]
     Active Substance: POLYETHYLENE GLYCOL 4000\POTASSIUM CHLORIDE\SODIUM BICARBONATE\SODIUM CHLORIDE\SODIUM SULFATE
     Dosage: 17 MG, QD
     Route: 048
  160. POLYETHYLENE GLYCOL 4000\POTASSIUM CHLORIDE\SODIUM BICARBONATE\SODIUM [Suspect]
     Active Substance: POLYETHYLENE GLYCOL 4000\POTASSIUM CHLORIDE\SODIUM BICARBONATE\SODIUM CHLORIDE\SODIUM SULFATE
     Route: 048
  161. SODIUM CHLORIDE [Suspect]
     Active Substance: SODIUM CHLORIDE
  162. POTASSIUM CHLORIDE [Suspect]
     Active Substance: POTASSIUM CHLORIDE
     Indication: Constipation
     Dosage: 17 MG, QD
     Route: 048
  163. POTASSIUM CHLORIDE [Suspect]
     Active Substance: POTASSIUM CHLORIDE
     Dosage: 17 G, QD
     Route: 048
  164. PHYTONADIONE [Suspect]
     Active Substance: PHYTONADIONE
     Indication: Vitamin supplementation
     Dosage: 5 MG, QD
     Route: 042
  165. PHYTONADIONE [Suspect]
     Active Substance: PHYTONADIONE
     Route: 042
  166. DEXTROSE [Suspect]
     Active Substance: DEXTROSE MONOHYDRATE
     Indication: Nutritional supplementation
     Dosage: 12.5 MG, QD
     Route: 042
  167. DEXTROSE [Suspect]
     Active Substance: DEXTROSE MONOHYDRATE
     Dosage: 12 MG, QD
     Route: 042
  168. DEXTROSE [Suspect]
     Active Substance: DEXTROSE MONOHYDRATE
     Dosage: 1 DF, QD
     Route: 042
  169. DEXTROSE [Suspect]
     Active Substance: DEXTROSE MONOHYDRATE
     Route: 065
  170. DEXTROSE [Suspect]
     Active Substance: DEXTROSE MONOHYDRATE
     Route: 065
  171. DEXTROSE [Suspect]
     Active Substance: DEXTROSE MONOHYDRATE
     Route: 054
  172. SODIUM BICARBONATE [Suspect]
     Active Substance: SODIUM BICARBONATE
     Indication: Nutritional supplementation
     Route: 065
  173. BUDESONIDE [Suspect]
     Active Substance: BUDESONIDE
  174. MESALAMINE [Suspect]
     Active Substance: MESALAMINE
  175. OSELTAMIVIR PHOSPHATE [Suspect]
     Active Substance: OSELTAMIVIR PHOSPHATE
     Indication: Chronic obstructive pulmonary disease
  176. MELATONIN [Suspect]
     Active Substance: MELATONIN
     Indication: Intentional product misuse
     Route: 048
  177. MELATONIN [Suspect]
     Active Substance: MELATONIN
     Indication: Off label use
     Dosage: 3.000MG QD
     Route: 048
  178. MELATONIN [Suspect]
     Active Substance: MELATONIN
     Indication: Sleep disorder therapy
     Dosage: 3.000MG QD
     Route: 048
  179. MELATONIN [Suspect]
     Active Substance: MELATONIN
     Dosage: 3.000MG QD
     Route: 048
  180. MELATONIN [Suspect]
     Active Substance: MELATONIN
     Dosage: 3.000MG QD
     Route: 048
  181. MELATONIN [Suspect]
     Active Substance: MELATONIN
     Route: 048
  182. MELATONIN [Suspect]
     Active Substance: MELATONIN
     Route: 048
  183. MELATONIN [Suspect]
     Active Substance: MELATONIN
     Route: 048
  184. DULCOLAX (BISACODYL) [Suspect]
     Active Substance: BISACODYL
     Indication: Drug therapy
     Dosage: : 10.0 MG, QD
     Route: 054
  185. DULCOLAX (BISACODYL) [Suspect]
     Active Substance: BISACODYL
     Indication: Ventricular fibrillation
     Route: 065
  186. DULCOLAX (BISACODYL) [Suspect]
     Active Substance: BISACODYL
     Indication: Off label use
     Dosage: : 10.0 MG, QD
     Route: 054
  187. DULCOLAX (BISACODYL) [Suspect]
     Active Substance: BISACODYL
     Indication: Intentional product misuse
     Dosage: : 10.0 MG, QD
     Route: 054
  188. DULCOLAX (BISACODYL) [Suspect]
     Active Substance: BISACODYL
     Indication: Constipation
     Route: 054
  189. DULCOLAX (BISACODYL) [Suspect]
     Active Substance: BISACODYL
     Route: 054
  190. DULCOLAX (BISACODYL) [Suspect]
     Active Substance: BISACODYL
     Dosage: : 10.0 MG, QD
     Route: 054
  191. DULCOLAX (BISACODYL) [Suspect]
     Active Substance: BISACODYL
     Route: 054
  192. DULCOLAX (BISACODYL) [Suspect]
     Active Substance: BISACODYL
     Dosage: : 10.0 MG, QD
     Route: 054
  193. DULCOLAX (BISACODYL) [Suspect]
     Active Substance: BISACODYL
     Dosage: 10.000MG QD
     Route: 054
  194. DULCOLAX (BISACODYL) [Suspect]
     Active Substance: BISACODYL
     Route: 065

REACTIONS (8)
  - Anaemia [Fatal]
  - Aortic stenosis [Fatal]
  - Chronic obstructive pulmonary disease [Fatal]
  - Ventricular fibrillation [Fatal]
  - End stage renal disease [Fatal]
  - Drug ineffective [Fatal]
  - Incorrect route of product administration [Fatal]
  - Off label use [Fatal]
